FAERS Safety Report 4933789-3 (Version None)
Quarter: 2006Q1

REPORT INFORMATION
  Report Type: 
  Country: None (occurrence: None)
  Receive Date: 20060306
  Receipt Date: 20051103
  Transmission Date: 20060701
  Serious: Yes (Disabling, Other)
  Sender: FDA-Public Use
  Company Number: US-MERCK-0511USA00807

PATIENT
  Age: 56 Year
  Sex: Female
  Weight: 91 kg

DRUGS (13)
  1. VIOXX [Suspect]
     Indication: OSTEOARTHRITIS
     Route: 048
     Dates: start: 20000101, end: 20010101
  2. LOTREL [Concomitant]
     Indication: HYPERTENSION
     Route: 065
     Dates: start: 20000101
  3. K-DUR 10 [Concomitant]
     Route: 065
     Dates: start: 20000101
  4. ZAROXOLYN [Concomitant]
     Indication: FLUID OVERLOAD
     Route: 065
     Dates: start: 20000101
  5. ANASPAZ [Concomitant]
     Route: 065
  6. ESTRADIOL [Concomitant]
     Indication: HORMONE REPLACEMENT THERAPY
     Route: 065
     Dates: start: 20010101
  7. LOTRISONE [Concomitant]
     Route: 065
  8. ALLEGRA [Concomitant]
     Route: 065
  9. LOMOTIL [Concomitant]
     Route: 065
  10. MECLIZINE HYDROCHLORIDE [Concomitant]
     Route: 065
  11. DROPERIDOL [Concomitant]
     Route: 065
  12. SYNTHROID [Concomitant]
     Indication: HYPOTHYROIDISM
     Route: 065
  13. ASPIRIN [Concomitant]
     Route: 048
     Dates: start: 20010101

REACTIONS (4)
  - ARTHROPATHY [None]
  - CEREBROVASCULAR ACCIDENT [None]
  - HYPERTENSION [None]
  - OEDEMA PERIPHERAL [None]
